FAERS Safety Report 7621092-2 (Version None)
Quarter: 2011Q3

REPORT INFORMATION
  Report Type: 
  Country: None (occurrence: None)
  Receive Date: 20110719
  Receipt Date: 20110316
  Transmission Date: 20111222
  Serious: No
  Sender: FDA-Public Use
  Company Number: US-KINGPHARMUSA00001-K201100278

PATIENT
  Age: 64 Year
  Sex: Female
  Weight: 73.923 kg

DRUGS (4)
  1. GABAPENTIN [Concomitant]
     Indication: PAIN
     Dosage: UNK
  2. LEVOXYL [Suspect]
     Indication: HYPOTHYROIDISM
     Dosage: 25 MCG, QD
     Route: 048
     Dates: start: 20100801
  3. SINGULAIR [Concomitant]
     Indication: ASTHMA
     Dosage: UNK
  4. KLONOPIN [Concomitant]
     Indication: INSOMNIA
     Dosage: UNK

REACTIONS (5)
  - DIARRHOEA [None]
  - OROPHARYNGEAL DISCOMFORT [None]
  - HEADACHE [None]
  - DYSGEUSIA [None]
  - PRURITUS [None]
